FAERS Safety Report 4663961-1 (Version None)
Quarter: 2005Q2

REPORT INFORMATION
  Report Type: 
  Country: None (occurrence: None)
  Receive Date: 20050428
  Receipt Date: 20050201
  Transmission Date: 20051028
  Serious: No
  Sender: FDA-Public Use
  Company Number: ACETADOTE_002

PATIENT
  Age: 14 Year
  Sex: Male
  Weight: 59 kg

DRUGS (1)
  1. ACETADOTE [Suspect]
     Indication: OVERDOSE
     Dosage: 9000 MG, IV
     Route: 042
     Dates: start: 20041207, end: 20041207

REACTIONS (1)
  - ANAPHYLACTOID REACTION [None]
